FAERS Safety Report 4450318-1 (Version None)
Quarter: 2004Q3

REPORT INFORMATION
  Report Type: 
  Country: None (occurrence: None)
  Receive Date: 20040914
  Receipt Date: 20040830
  Transmission Date: 20050211
  Serious: Yes (Hospitalization)
  Sender: FDA-Public Use
  Company Number: A02200402616

PATIENT
  Age: 85 Year
  Sex: Female

DRUGS (6)
  1. PLAVIX [Suspect]
     Indication: ANGINA PECTORIS
     Dosage: 75 MG OD
     Route: 048
  2. PLAVIX [Suspect]
     Indication: ATHEROSCLEROSIS
     Dosage: 75 MG OD
     Route: 048
  3. APROVEL (IRBESARTAN) [Concomitant]
  4. PRAXILENE (ANFTIDROFURYL OXALATE) [Concomitant]
  5. HYPERIUM (RILMENIDINE) [Concomitant]
  6. OMEPRAZOLE [Concomitant]

REACTIONS (4)
  - HIATUS HERNIA [None]
  - IRON DEFICIENCY ANAEMIA [None]
  - LUNG INFECTION [None]
  - RENAL FAILURE [None]
